FAERS Safety Report 15347901 (Version 1)
Quarter: 2018Q3

REPORT INFORMATION
  Report Type: Spontaneous
  Country: US (occurrence: US)
  Receive Date: 20180904
  Receipt Date: 20180904
  Transmission Date: 20181010
  Serious: Yes (Other)
  Sender: FDA-Public Use
  Company Number: US-TEVA-2018-US-950335

PATIENT
  Age: 65 Year
  Sex: Female

DRUGS (1)
  1. ANASTROZOLE. [Suspect]
     Active Substance: ANASTROZOLE
     Indication: INVASIVE LOBULAR BREAST CARCINOMA
     Route: 065

REACTIONS (4)
  - Uveitis [Recovering/Resolving]
  - Cystoid macular oedema [Recovered/Resolved]
  - Iritis [Recovered/Resolved]
  - Amblyopia [Recovering/Resolving]
